FAERS Safety Report 8398694-1 (Version None)
Quarter: 2012Q2

REPORT INFORMATION
  Report Type: 
  Country: None (occurrence: None)
  Receive Date: 20120524
  Receipt Date: 20120511
  Transmission Date: 20120825
  Serious: Yes (Other)
  Sender: FDA-Public Use
  Company Number: 2012SP025305

PATIENT

DRUGS (1)
  1. CELESTONE [Suspect]
     Indication: EPICONDYLITIS
     Dates: start: 20110901

REACTIONS (1)
  - INJECTION SITE NECROSIS [None]
